FAERS Safety Report 4772952-1 (Version None)
Quarter: 2005Q3

REPORT INFORMATION
  Report Type: 
  Country: None (occurrence: None)
  Receive Date: 20050916
  Receipt Date: 20050907
  Transmission Date: 20060218
  Serious: Yes (Other)
  Sender: FDA-Public Use
  Company Number: DE-2004-034088

PATIENT
  Sex: Female

DRUGS (2)
  1. YASMIN [Suspect]
     Dosage: ORAL
     Route: 048
  2. 9 VITAMINEKOMPLEX-RATIOPHARM(ASCORBIC ACID, VITAMIN B NOS, THIAMINE MO [Concomitant]

REACTIONS (1)
  - VISUAL ACUITY REDUCED [None]
